FAERS Safety Report 5608044-9 (Version None)
Quarter: 2008Q1

REPORT INFORMATION
  Report Type: 
  Country: None (occurrence: None)
  Receive Date: 20080128
  Receipt Date: 20080128
  Transmission Date: 20080703
  Serious: Yes (Other)
  Sender: FDA-Public Use
  Company Number: None

PATIENT
  Age: 54 Year
  Sex: Male
  Weight: 56.6996 kg

DRUGS (1)
  1. CHANTIX [Suspect]
     Indication: SMOKING CESSATION THERAPY
     Dosage: 1MG TWICE A DAY PO
     Route: 048

REACTIONS (9)
  - DECREASED INTEREST [None]
  - DEPRESSION [None]
  - DISTURBANCE IN ATTENTION [None]
  - HYPERSOMNIA [None]
  - LIBIDO DECREASED [None]
  - NIGHTMARE [None]
  - SUICIDAL IDEATION [None]
  - THINKING ABNORMAL [None]
  - WEIGHT INCREASED [None]
